FAERS Safety Report 7161668-2 (Version None)
Quarter: 2010Q4

REPORT INFORMATION
  Report Type: 
  Country: None (occurrence: None)
  Receive Date: 20101123
  Receipt Date: 20100924
  Transmission Date: 20110411
  Serious: No
  Sender: FDA-Public Use
  Company Number: 018467

PATIENT
  Sex: Female
  Weight: 63.4 kg

DRUGS (4)
  1. CIMZIA [Suspect]
     Indication: CROHN'S DISEASE
     Dosage: 400 MG, FREQUENCY 0, 2, 4 WEEKS SUBCUTANEOUS
     Route: 058
     Dates: start: 20100820, end: 20100903
  2. TYLENOL (CAPLET) [Concomitant]
  3. REMICADE [Concomitant]
  4. CYANOCOBALAMIN [Concomitant]

REACTIONS (2)
  - HEADACHE [None]
  - INJECTION SITE REACTION [None]
